FAERS Safety Report 7807690-1 (Version None)
Quarter: 2011Q4

REPORT INFORMATION
  Report Type: 
  Country: None (occurrence: None)
  Receive Date: 20111011
  Receipt Date: 20111007
  Transmission Date: 20120403
  Serious: No
  Sender: FDA-Public Use
  Company Number: US-B.I. PHARMACEUTICALS,INC./RIDGEFIELD-2011-BP-23845BP

PATIENT
  Age: 82 Year
  Sex: Female

DRUGS (6)
  1. PRADAXA [Suspect]
     Indication: ATRIAL FIBRILLATION
     Dosage: 300 MG
     Route: 048
     Dates: start: 20111001
  2. TOPROL-XL [Concomitant]
     Indication: HYPERTENSION
  3. LUMIGAN [Concomitant]
  4. SYNTHROID [Concomitant]
     Indication: THYROID DISORDER
  5. SIMVASTATIN [Concomitant]
     Indication: PROPHYLAXIS
  6. NITROFURANTOIN [Concomitant]
     Indication: PROPHYLAXIS

REACTIONS (1)
  - PAIN IN EXTREMITY [None]
